FAERS Safety Report 26044051 (Version 1)
Quarter: 2025Q4

REPORT INFORMATION
  Report Type: Spontaneous
  Country: US (occurrence: US)
  Receive Date: 20251114
  Receipt Date: 20251114
  Transmission Date: 20260117
  Serious: No
  Sender: ROCHE
  Company Number: US-ROCHE-10000424957

PATIENT
  Sex: Male
  Weight: 23.5 kg

DRUGS (1)
  1. HEMLIBRA [Suspect]
     Active Substance: EMICIZUMAB-KXWH
     Indication: Factor VIII deficiency
     Dosage: STRENGTH: 105 MG/0.7 ML
     Route: 058

REACTIONS (4)
  - Liquid product physical issue [Unknown]
  - Product packaging quantity issue [Unknown]
  - No adverse event [Unknown]
  - Device issue [Unknown]
